FAERS Safety Report 17776590 (Version 1)
Quarter: 2020Q2

REPORT INFORMATION
  Report Type: Spontaneous
  Country: US (occurrence: US)
  Receive Date: 20200513
  Receipt Date: 20200513
  Transmission Date: 20200714
  Serious: No
  Sender: FDA-Public Use
  Company Number: US-ACADIA PHARMACEUTICALS INC.-ACA-2019-013797

PATIENT
  Age: 71 Year

DRUGS (1)
  1. NUPLAZID [Suspect]
     Active Substance: PIMAVANSERIN TARTRATE
     Indication: PRODUCT USED FOR UNKNOWN INDICATION
     Dosage: UNK
     Route: 065
     Dates: start: 20190802, end: 20190805

REACTIONS (4)
  - Oedema peripheral [Unknown]
  - Mobility decreased [Unknown]
  - Chest pain [Unknown]
  - Indifference [Unknown]

NARRATIVE: CASE EVENT DATE: 20190805
